FAERS Safety Report 25615842 (Version 1)
Quarter: 2025Q3

REPORT INFORMATION
  Report Type: Report from Study
  Country: US (occurrence: US)
  Receive Date: 20250729
  Receipt Date: 20250729
  Transmission Date: 20251021
  Serious: Yes (Hospitalization, Other)
  Sender: ABBVIE
  Company Number: US-ABBVIE-6388572

PATIENT
  Age: 85 Year
  Sex: Male

DRUGS (1)
  1. SKYRIZI [Suspect]
     Active Substance: RISANKIZUMAB-RZAA
     Indication: Crohn^s disease
     Route: 058
     Dates: start: 202411

REACTIONS (4)
  - Cardiac arrest [Recovering/Resolving]
  - Asthenia [Not Recovered/Not Resolved]
  - Rib fracture [Unknown]
  - Colon cancer [Recovered/Resolved]

NARRATIVE: CASE EVENT DATE: 20250101
